FAERS Safety Report 5520146-4 (Version None)
Quarter: 2007Q4

REPORT INFORMATION
  Report Type: 
  Country: None (occurrence: None)
  Receive Date: 20071116
  Receipt Date: 20071112
  Transmission Date: 20080405
  Serious: Yes (Hospitalization)
  Sender: FDA-Public Use
  Company Number: FR-BRISTOL-MYERS SQUIBB COMPANY-13236302

PATIENT
  Age: 71 Year
  Sex: Female

DRUGS (5)
  1. ABATACEPT [Suspect]
     Indication: RHEUMATOID ARTHRITIS
     Route: 042
     Dates: start: 20051109
  2. METHOTREXATE [Concomitant]
     Dates: start: 20000101
  3. CORTANCYL [Concomitant]
     Dates: start: 20050601
  4. KLIPAL [Concomitant]
     Dates: start: 20000101
  5. SPECIAFOLDINE [Concomitant]
     Dates: start: 20000101

REACTIONS (2)
  - ASTHMA [None]
  - BRONCHITIS [None]
